FAERS Safety Report 7434946-7 (Version None)
Quarter: 2011Q2

REPORT INFORMATION
  Report Type: 
  Country: None (occurrence: None)
  Receive Date: 20110425
  Receipt Date: 20110419
  Transmission Date: 20111010
  Serious: Yes (Hospitalization)
  Sender: FDA-Public Use
  Company Number: FR-ABBOTT-11P-056-0720252-00

PATIENT
  Sex: Female

DRUGS (2)
  1. HUMIRA [Suspect]
     Indication: ANKYLOSING SPONDYLITIS
     Dates: start: 20080501, end: 20101101
  2. CORTICOIDS (NOS) [Concomitant]
     Indication: ANKYLOSING SPONDYLITIS
     Dates: start: 20080501

REACTIONS (1)
  - OPTIC NEURITIS [None]
